FAERS Safety Report 18331435 (Version 2)
Quarter: 2020Q4

REPORT INFORMATION
  Report Type: Report from Study
  Country: US (occurrence: US)
  Receive Date: 20200930
  Receipt Date: 20201013
  Transmission Date: 20210113
  Serious: Yes (Other)
  Sender: FDA-Public Use
  Company Number: US-JNJFOC-20200938631

PATIENT
  Age: 78 Year
  Sex: Male
  Weight: 76.73 kg

DRUGS (1)
  1. SPRAVATO [Suspect]
     Active Substance: ESKETAMINE
     Indication: DEPRESSION
     Dosage: TOTAL 1 DOSE
     Dates: start: 20200918, end: 20200918

REACTIONS (4)
  - Hypertension [Recovered/Resolved]
  - Sedation [Recovered/Resolved]
  - Surgery [Recovering/Resolving]
  - Dissociation [Recovered/Resolved]

NARRATIVE: CASE EVENT DATE: 20200918
